FAERS Safety Report 7109853-X (Version None)
Quarter: 2010Q4

REPORT INFORMATION
  Report Type: 
  Country: None (occurrence: None)
  Receive Date: 20101116
  Receipt Date: 20101116
  Transmission Date: 20110411
  Serious: Yes (Life-Threatening)
  Sender: FDA-Public Use
  Company Number: None

PATIENT
  Age: 64 Year
  Sex: Male
  Weight: 127.4608 kg

DRUGS (1)
  1. LANTUS [Suspect]
     Indication: TYPE 2 DIABETES MELLITUS
     Dosage: }100 UNITS DAILY SQ
     Route: 058
     Dates: start: 20080901, end: 20101001

REACTIONS (1)
  - METASTATIC MALIGNANT MELANOMA [None]
